FAERS Safety Report 9366039 (Version 2)
Quarter: 2013Q2

REPORT INFORMATION
  Report Type: Spontaneous
  Country: FR (occurrence: FR)
  Receive Date: 20130625
  Receipt Date: 20130625
  Transmission Date: 20140414
  Serious: Yes (Death)
  Sender: FDA-Public Use
  Company Number: FR-TEVA-414704ISR

PATIENT
  Age: 84 Year
  Sex: Female

DRUGS (2)
  1. FUROSEMIDE TEVA [Suspect]
  2. MORPHINE [Concomitant]

REACTIONS (2)
  - Acute pulmonary oedema [Fatal]
  - Somnolence [Unknown]
